FAERS Safety Report 25413373 (Version 3)
Quarter: 2025Q3

REPORT INFORMATION
  Report Type: Report from Study
  Country: US (occurrence: US)
  Receive Date: 20250609
  Receipt Date: 20250711
  Transmission Date: 20251021
  Serious: No
  Sender: OTSUKA
  Company Number: US-MMM-Otsuka-EGQHMTN5

PATIENT
  Sex: Female

DRUGS (2)
  1. BREXPIPRAZOLE [Suspect]
     Active Substance: BREXPIPRAZOLE
     Indication: Major depression
     Dosage: 1 MG, QD (AFTER 0.5 MG)
     Route: 048
     Dates: end: 20250405
  2. BREXPIPRAZOLE [Suspect]
     Active Substance: BREXPIPRAZOLE
     Indication: Depression
     Dosage: 0.5 MG, QD (ONE WEEK)
     Route: 048
     Dates: start: 20250327, end: 202504

REACTIONS (1)
  - Tremor [Recovering/Resolving]
